FAERS Safety Report 8458860-3 (Version None)
Quarter: 2012Q2

REPORT INFORMATION
  Report Type: 
  Country: None (occurrence: None)
  Receive Date: 20120622
  Receipt Date: 20120611
  Transmission Date: 20120825
  Serious: Yes (Hospitalization, Congenital Anomaly)
  Sender: FDA-Public Use
  Company Number: JP-ELI_LILLY_AND_COMPANY-JP201205010408

PATIENT
  Sex: Female

DRUGS (2)
  1. ZYPREXA [Suspect]
     Route: 064
  2. ZYPREXA [Suspect]
     Route: 064

REACTIONS (2)
  - FOETAL EXPOSURE DURING PREGNANCY [None]
  - OESOPHAGEAL ATRESIA [None]
